FAERS Safety Report 22970226 (Version 2)
Quarter: 2023Q4

REPORT INFORMATION
  Report Type: Spontaneous
  Country: JP (occurrence: JP)
  Receive Date: 20230922
  Receipt Date: 20231005
  Transmission Date: 20240110
  Serious: Yes (Other)
  Sender: FDA-Public Use
  Company Number: JP-ORGANON-O2309JPN002481

PATIENT
  Age: 12 Year
  Sex: Male

DRUGS (4)
  1. DESLORATADINE [Suspect]
     Active Substance: DESLORATADINE
     Indication: Dermatitis atopic
     Dosage: UNK
     Route: 048
  2. METHOTREXATE [Suspect]
     Active Substance: METHOTREXATE
     Indication: Acute lymphocytic leukaemia
     Dosage: 5 GRAM, 24-HOUR DRIP INFUSION
     Route: 041
  3. METHOTREXATE [Suspect]
     Active Substance: METHOTREXATE
     Dosage: 2G/SQM
     Route: 041
  4. METHOTREXATE [Suspect]
     Active Substance: METHOTREXATE
     Dosage: 3G/SQM
     Route: 041

REACTIONS (1)
  - Acute kidney injury [Recovered/Resolved]
